FAERS Safety Report 9223290 (Version 2)
Quarter: 2013Q2

REPORT INFORMATION
  Report Type: Spontaneous
  Country: US (occurrence: US)
  Receive Date: 20130410
  Receipt Date: 20130507
  Transmission Date: 20140414
  Serious: Yes (Hospitalization)
  Sender: FDA-Public Use
  Company Number: US-GENZYME-CERZ-1002884

PATIENT
  Age: 41 Year
  Sex: Female
  Weight: 90.25 kg

DRUGS (8)
  1. CEREZYME [Suspect]
     Indication: GAUCHER^S DISEASE
     Dosage: 53.2 U/KG, 1X/W
     Route: 042
     Dates: start: 20110221
  2. PREDNISONE [Suspect]
     Dosage: 60 MG FOR 4 DAYS
     Route: 065
     Dates: start: 20130312, end: 20130401
  3. PREDNISONE [Suspect]
     Dosage: 50 MG FOR 4 DAYS
     Route: 065
  4. PREDNISONE [Suspect]
     Dosage: 40 UNK, UNK
  5. NORMAL SALINE [Concomitant]
     Dosage: UNK
     Route: 065
  6. SODIUM CHLORIDE [Concomitant]
     Dosage: UNK
     Route: 065
  7. STERILE WATER FOR INJ. [Concomitant]
     Dosage: UNK
     Route: 065
  8. EPIPEN [Concomitant]
     Dosage: UNK
     Route: 065

REACTIONS (1)
  - Diabetic ketoacidosis [Not Recovered/Not Resolved]
